FAERS Safety Report 9911611 (Version 1)
Quarter: 2014Q1

REPORT INFORMATION
  Report Type: Report from Study
  Country: AR (occurrence: AR)
  Receive Date: 20140219
  Receipt Date: 20140219
  Transmission Date: 20141002
  Serious: Yes (Hospitalization)
  Sender: FDA-Public Use
  Company Number: PHHY2014AR019499

PATIENT
  Sex: Male

DRUGS (1)
  1. EXFORGE [Suspect]
     Indication: HYPERTENSION
     Dosage: 0.5 DF (320/5 MG), DAILY
     Route: 048
     Dates: start: 20131215, end: 20140126

REACTIONS (5)
  - Blindness [Recovering/Resolving]
  - Metabolic disorder [Recovering/Resolving]
  - Drug intolerance [Recovering/Resolving]
  - Blood pressure increased [Not Recovered/Not Resolved]
  - Wrong technique in drug usage process [Unknown]
